FAERS Safety Report 17806655 (Version 1)
Quarter: 2020Q2

REPORT INFORMATION
  Report Type: Spontaneous
  Country: IN (occurrence: IN)
  Receive Date: 20200520
  Receipt Date: 20200520
  Transmission Date: 20200714
  Serious: Yes (Hospitalization)
  Sender: FDA-Public Use
  Company Number: IN-MYLANLABS-2020M1049390

PATIENT
  Sex: Male

DRUGS (4)
  1. ATROPINE. [Suspect]
     Active Substance: ATROPINE
     Indication: KERATITIS INTERSTITIAL
     Route: 047
  2. CARMELLOSE SODIUM [Suspect]
     Active Substance: CARBOXYMETHYLCELLULOSE SODIUM
     Indication: KERATITIS INTERSTITIAL
     Route: 047
  3. MOXIFLOXACIN. [Suspect]
     Active Substance: MOXIFLOXACIN
     Indication: KERATITIS INTERSTITIAL
     Route: 047
  4. BETAMETHASONE. [Suspect]
     Active Substance: BETAMETHASONE
     Indication: KERATITIS INTERSTITIAL
     Route: 047

REACTIONS (1)
  - Drug ineffective [Unknown]
